FAERS Safety Report 21628387 (Version 1)
Quarter: 2022Q4

REPORT INFORMATION
  Report Type: Spontaneous
  Country: US (occurrence: US)
  Receive Date: 20221122
  Receipt Date: 20221122
  Transmission Date: 20230113
  Serious: No
  Sender: FDA-Public Use
  Company Number: US-BRISTOL-MYERS SQUIBB COMPANY-2022-139002

PATIENT
  Age: 64 Year
  Sex: Male

DRUGS (1)
  1. POMALYST [Suspect]
     Active Substance: POMALIDOMIDE
     Indication: Plasma cell myeloma
     Dosage: FREQ: TAKE 1 CAPSULE BY MOUTH DAILY WHOLE W/WATER OR W/O FOOD AT THE SAME TIME ON DAYS  1-21 ?REST D
     Route: 048
     Dates: start: 20211215

REACTIONS (2)
  - Asthenia [Unknown]
  - Psychiatric symptom [Unknown]
